FAERS Safety Report 4802255-8 (Version None)
Quarter: 2005Q4

REPORT INFORMATION
  Report Type: 
  Country: None (occurrence: None)
  Receive Date: 20051012
  Receipt Date: 20050930
  Transmission Date: 20060501
  Serious: Yes (Other)
  Sender: FDA-Public Use
  Company Number: 2005US001429

PATIENT
  Sex: Male

DRUGS (7)
  1. PROGRAF [Suspect]
     Indication: PROPHYLAXIS AGAINST TRANSPLANT REJECTION
     Dosage: 1.50 + 0.50 MG, UID/QD, ORAL
     Route: 048
     Dates: start: 19970101
  2. PROGRAF [Suspect]
     Indication: PROPHYLAXIS AGAINST TRANSPLANT REJECTION
     Dosage: 1.50 + 0.50 MG, UID/QD, ORAL
     Route: 048
     Dates: start: 20050801
  3. PREDNISONE [Concomitant]
  4. MYCOPHENOLATE MOFETIL (MYCOPHENOLATEMOFETIL) [Concomitant]
  5. SPORANOX [Concomitant]
  6. REGLAN [Concomitant]
  7. RAPAMUNE [Concomitant]

REACTIONS (5)
  - ASTHENIA [None]
  - BLINDNESS UNILATERAL [None]
  - DRUG LEVEL INCREASED [None]
  - TREMOR [None]
  - VISUAL ACUITY REDUCED [None]
